FAERS Safety Report 4640271-X (Version None)
Quarter: 2005Q2

REPORT INFORMATION
  Report Type: 
  Country: None (occurrence: None)
  Receive Date: 20050420
  Receipt Date: 20050415
  Transmission Date: 20051028
  Serious: Yes (Hospitalization)
  Sender: FDA-Public Use
  Company Number: FR-GLAXOSMITHKLINE-B0378107A

PATIENT
  Age: 55 Year
  Sex: Female

DRUGS (8)
  1. AUGMENTIN '125' [Suspect]
     Indication: BRONCHITIS
     Dosage: 1G THREE TIMES PER DAY
     Route: 048
     Dates: start: 20050104, end: 20050112
  2. LAMISIL [Suspect]
     Indication: VAGINAL MYCOSIS
     Dosage: 1UNIT PER DAY
     Route: 048
     Dates: start: 20050114, end: 20050119
  3. COLCHICINE HOUDE [Concomitant]
     Indication: HYPERURICAEMIA
     Route: 048
     Dates: end: 20050130
  4. GLUCOPHAGE [Concomitant]
     Indication: DIABETES MELLITUS NON-INSULIN-DEPENDENT
     Dosage: 850MG THREE TIMES PER DAY
     Route: 048
  5. GLUCOR [Concomitant]
     Indication: DIABETES MELLITUS NON-INSULIN-DEPENDENT
     Dosage: 150MG THREE TIMES PER DAY
     Route: 048
  6. ALLOPURINOL [Concomitant]
     Indication: HYPERURICAEMIA
     Route: 048
     Dates: end: 20050130
  7. MONAZOL [Concomitant]
     Indication: VAGINAL MYCOSIS
     Route: 065
     Dates: start: 20050114, end: 20050119
  8. LAMISIL [Concomitant]
     Indication: VAGINAL MYCOSIS
     Route: 065
     Dates: start: 20050114, end: 20050119

REACTIONS (9)
  - ACUTE GENERALISED EXANTHEMATOUS PUSTULOSIS [None]
  - BLISTER [None]
  - DERMATITIS EXFOLIATIVE [None]
  - FUNGAL INFECTION [None]
  - HYPERURICAEMIA [None]
  - OEDEMA PERIPHERAL [None]
  - RASH ERYTHEMATOUS [None]
  - RASH PUSTULAR [None]
  - SKIN LESION [None]
